FAERS Safety Report 23480706 (Version 6)
Quarter: 2024Q2

REPORT INFORMATION
  Report Type: Other
  Country: CA (occurrence: None)
  Receive Date: 20240205
  Receipt Date: 20240401
  Transmission Date: 20240716
  Serious: Yes (Hospitalization)
  Sender: FDA-Public Use
  Company Number: CA-ROCHE-3498133

PATIENT
  Sex: Male

DRUGS (4)
  1. OCREVUS [Suspect]
     Active Substance: OCRELIZUMAB
     Indication: Primary progressive multiple sclerosis
     Dosage: 300 MG AT DAY 0 AND 14, THEN 600 MG EVERY 6 MONTHS
     Route: 042
     Dates: start: 20210511
  2. MIRTAZAPINE [Concomitant]
     Active Substance: MIRTAZAPINE
  3. DIAZEPAM [Concomitant]
     Active Substance: DIAZEPAM
  4. LAMIVUDINE [Concomitant]
     Active Substance: LAMIVUDINE

REACTIONS (4)
  - Syphilis [Unknown]
  - COVID-19 [Recovered/Resolved]
  - Gait disturbance [Recovering/Resolving]
  - Bladder dysfunction [Recovered/Resolved]
